FAERS Safety Report 10214699 (Version 1)
Quarter: 2014Q2

REPORT INFORMATION
  Report Type: Spontaneous
  Country: CA (occurrence: CA)
  Receive Date: 20140603
  Receipt Date: 20140603
  Transmission Date: 20141212
  Serious: Yes (Life-Threatening)
  Sender: FDA-Public Use
  Company Number: CA-B.I. PHARMACEUTICALS,INC./RIDGEFIELD-2014-BI-24612CN

PATIENT
  Age: 63 Year
  Sex: Female
  Weight: 89 kg

DRUGS (11)
  1. MICARDIS [Suspect]
     Indication: PRODUCT USED FOR UNKNOWN INDICATION
     Dosage: 80 MG
     Route: 065
  2. RIVASA [Suspect]
     Indication: PRODUCT USED FOR UNKNOWN INDICATION
     Dosage: 80 MG
     Route: 065
  3. ATIVAN [Concomitant]
     Route: 065
  4. AXID [Concomitant]
     Route: 065
  5. HUMALOG [Concomitant]
     Dosage: FORMULATION: LIQUID SUBCUTANEOUS
     Route: 065
  6. HUMULIN N INJ 100 UNIT/ML [Concomitant]
     Dosage: FORMULATION : LIQUID INTRAMUSCULAR
     Route: 065
  7. MAALOX [Concomitant]
     Dosage: UNIT: UNITS
     Route: 065
  8. METAMUCIL [Concomitant]
     Route: 065
  9. NITRAZADON [Concomitant]
     Route: 065
  10. PREMARIN [Concomitant]
     Dosage: 9 MG
     Route: 065
  11. SYNTHROID [Concomitant]
     Route: 065

REACTIONS (8)
  - Burning sensation [Unknown]
  - Dizziness [Unknown]
  - Dyspnoea [Unknown]
  - Feeling hot [Unknown]
  - Flushing [Unknown]
  - Periorbital oedema [Unknown]
  - Pharyngeal oedema [Unknown]
  - Swollen tongue [Unknown]
